FAERS Safety Report 4696351-6 (Version None)
Quarter: 2005Q2

REPORT INFORMATION
  Report Type: 
  Country: None (occurrence: None)
  Receive Date: 20050620
  Receipt Date: 20050610
  Transmission Date: 20051028
  Serious: Yes (Death, Hospitalization, Other)
  Sender: FDA-Public Use
  Company Number: KII-2005-0016996

PATIENT
  Age: 19 Year
  Sex: Male

DRUGS (4)
  1. MORPHINE SULFATE [Suspect]
     Dosage: ORAL
     Route: 048
  2. XANAX [Suspect]
     Dosage: ORAL
     Route: 048
  3. MARIJUANA (CANNABIS) [Suspect]
  4. COCAINE (COCAINE) [Suspect]

REACTIONS (20)
  - ANION GAP INCREASED [None]
  - BLOOD PH DECREASED [None]
  - BLOOD PRESSURE INCREASED [None]
  - BOWEL SOUNDS ABNORMAL [None]
  - BRAIN DEATH [None]
  - BRAIN OEDEMA [None]
  - COMA [None]
  - DRUG SCREEN POSITIVE [None]
  - EYE ROLLING [None]
  - FLUSHING [None]
  - HYPOTENSION [None]
  - HYPOXIA [None]
  - ISCHAEMIA [None]
  - MIOSIS [None]
  - NYSTAGMUS [None]
  - POLYSUBSTANCE ABUSE [None]
  - PUPILLARY REFLEX IMPAIRED [None]
  - RESPIRATORY ARREST [None]
  - SINUS TACHYCARDIA [None]
  - THERMAL BURN [None]
